FAERS Safety Report 7724325-7 (Version None)
Quarter: 2011Q3

REPORT INFORMATION
  Report Type: 
  Country: None (occurrence: None)
  Receive Date: 20110901
  Receipt Date: 20110826
  Transmission Date: 20111222
  Serious: Yes (Other)
  Sender: FDA-Public Use
  Company Number: CN-PFIZER INC-2011199898

PATIENT
  Age: 28 Year
  Sex: Male

DRUGS (5)
  1. ENBREL [Suspect]
     Indication: ANKYLOSING SPONDYLITIS
     Dosage: 25MG, TWICE A WEEK
     Route: 058
     Dates: start: 20070312
  2. ENBREL [Suspect]
     Dosage: 12.5MG, ONCE A WEEK
     Route: 058
  3. SULFASALAZINE [Suspect]
     Indication: ANKYLOSING SPONDYLITIS
     Dosage: 0.5G
     Route: 048
  4. ENBREL [Suspect]
     Dosage: 12.5 MG, TWICE A WEEK
     Route: 058
     Dates: start: 20070501
  5. THALIDOMIDE [Suspect]
     Indication: ANKYLOSING SPONDYLITIS
     Dosage: 100MG, ONCE EVERY NIGHT
     Route: 048
     Dates: start: 20070312

REACTIONS (2)
  - GASTROINTESTINAL HAEMORRHAGE [None]
  - ACUTE LYMPHOCYTIC LEUKAEMIA [None]
